FAERS Safety Report 6357518-4 (Version None)
Quarter: 2009Q3

REPORT INFORMATION
  Report Type: 
  Country: None (occurrence: None)
  Receive Date: 20090916
  Receipt Date: 20071121
  Transmission Date: 20100115
  Serious: Yes (Other)
  Sender: FDA-Public Use
  Company Number: US-ASTRAZENECA-2007UW11001

PATIENT
  Age: 52 Year
  Sex: Female
  Weight: 81.2 kg

DRUGS (11)
  1. SEROQUEL [Suspect]
     Indication: SLEEP DISORDER
     Dosage: 50 - 300 MG
     Route: 048
     Dates: start: 20000101
  2. SEROQUEL [Suspect]
     Route: 048
     Dates: start: 20000101, end: 20070208
  3. EFFEXOR [Concomitant]
     Dates: start: 20020529
  4. KLONOPIN [Concomitant]
     Indication: ANXIETY
     Dosage: 0.5 - 2 MG
     Dates: start: 20010420
  5. KLONOPIN [Concomitant]
     Indication: MOOD SWINGS
     Dosage: 0.5 - 2 MG
     Dates: start: 20010420
  6. SERZONE [Concomitant]
     Dates: start: 20010420
  7. VALIUM [Concomitant]
     Dates: start: 20010420
  8. DESYREL [Concomitant]
     Dates: start: 20010420
  9. XANAX [Concomitant]
     Dates: start: 20000719
  10. ZOLOFT [Concomitant]
     Dosage: 50 - 200 MG
     Dates: start: 20000719
  11. TRILEPTAL [Concomitant]
     Dates: start: 20020529

REACTIONS (4)
  - DIABETIC GASTROPATHY [None]
  - DIABETIC NEUROPATHY [None]
  - TYPE 2 DIABETES MELLITUS [None]
  - WEIGHT INCREASED [None]
